FAERS Safety Report 25029934 (Version 1)
Quarter: 2025Q1

REPORT INFORMATION
  Report Type: Spontaneous
  Country: GB (occurrence: GB)
  Receive Date: 20250303
  Receipt Date: 20250303
  Transmission Date: 20250408
  Serious: Yes (Hospitalization)
  Sender: Haleon PLC
  Company Number: GB-KENVUE-20250205258

PATIENT
  Age: 7 Decade
  Sex: Male

DRUGS (2)
  1. NICORETTE [Suspect]
     Active Substance: NICOTINE
     Indication: Smoking cessation therapy
     Dosage: 20 GUMS A DAY
     Route: 048
     Dates: start: 20250127
  2. NICORETTE [Suspect]
     Active Substance: NICOTINE
     Route: 048

REACTIONS (2)
  - Cough [Not Recovered/Not Resolved]
  - Incorrect product administration duration [Unknown]
